FAERS Safety Report 10242587 (Version 1)
Quarter: 2014Q2

REPORT INFORMATION
  Report Type: Spontaneous
  Country: US (occurrence: US)
  Receive Date: 20140617
  Receipt Date: 20140617
  Transmission Date: 20141212
  Serious: No
  Sender: FDA-Public Use
  Company Number: US-009507513-1406USA007200

PATIENT
  Sex: Female

DRUGS (4)
  1. ASMANEX TWISTHALER [Suspect]
     Indication: ASTHMA
     Dosage: 1 INHALATION ONCE A DAY
     Route: 055
     Dates: start: 2006
  2. FLONASE [Concomitant]
  3. CLARITIN [Concomitant]
     Route: 048
  4. CRESTOR [Concomitant]

REACTIONS (3)
  - Dyspnoea [Recovering/Resolving]
  - Drug dose omission [Unknown]
  - Product quality issue [Unknown]
